FAERS Safety Report 6020889-2 (Version None)
Quarter: 2008Q4

REPORT INFORMATION
  Report Type: 
  Country: None (occurrence: None)
  Receive Date: 20081229
  Receipt Date: 20081215
  Transmission Date: 20090506
  Serious: Yes (Death)
  Sender: FDA-Public Use
  Company Number: US-PFIZER INC-2008154979

PATIENT
  Age: 36 Year
  Sex: Female

DRUGS (4)
  1. INHALED HUMAN INSULIN [Suspect]
  2. LORAZEPAM [Suspect]
  3. RISPERIDONE [Suspect]
  4. TOPIRAMATE [Suspect]

REACTIONS (1)
  - COMPLETED SUICIDE [None]
